FAERS Safety Report 9112562 (Version 1)
Quarter: 2013Q1

REPORT INFORMATION
  Report Type: Report from Study
  Country: US (occurrence: US)
  Receive Date: 20130211
  Receipt Date: 20130211
  Transmission Date: 20140127
  Serious: No
  Sender: FDA-Public Use
  Company Number: US-VERTEX PHARMACEUTICALS INC.-2013-001816

PATIENT
  Age: 28 Year
  Sex: Female
  Weight: 69 kg

DRUGS (5)
  1. VX-950 (TELAPREVIR) [Suspect]
     Indication: HEPATITIS C
     Dosage: 750 MG, TID
     Route: 048
  2. PEGASYS [Suspect]
     Indication: HEPATITIS C
     Dosage: 180 ?G, UNK
  3. RIBAVIRIN [Suspect]
     Indication: HEPATITIS C
     Dosage: 200 MG, UNK
  4. ALLEGRA [Concomitant]
     Dosage: 180 MG, UNK
  5. TYLENOL [Concomitant]
     Dosage: 500 MG, UNK

REACTIONS (7)
  - Influenza like illness [Unknown]
  - Emotional disorder [Unknown]
  - Irritability [Unknown]
  - Weight decreased [Unknown]
  - Insomnia [Unknown]
  - Fatigue [Unknown]
  - Rash [Unknown]
